FAERS Safety Report 4607659-4 (Version None)
Quarter: 2005Q1

REPORT INFORMATION
  Report Type: 
  Country: None (occurrence: None)
  Receive Date: 20050314
  Receipt Date: 20050303
  Transmission Date: 20050727
  Serious: Yes (Other)
  Sender: FDA-Public Use
  Company Number: CN-BRISTOL-MYERS SQUIBB COMPANY-12885414

PATIENT
  Age: 50 Year
  Sex: Female

DRUGS (2)
  1. TAXOL [Suspect]
     Indication: NASOPHARYNGEAL CANCER
     Route: 042
  2. RADIATION THERAPY [Concomitant]
     Indication: NASOPHARYNGEAL CANCER

REACTIONS (2)
  - DYSPHONIA [None]
  - MUCOSAL INFLAMMATION [None]
